FAERS Safety Report 16331384 (Version 1)
Quarter: 2019Q2

REPORT INFORMATION
  Report Type: Spontaneous
  Country: US (occurrence: US)
  Receive Date: 20190412
  Receipt Date: 20190412
  Transmission Date: 20190711
  Serious: Yes (Death)
  Sender: FDA-Public Use
  Company Number: None

PATIENT
  Age: 65 Year
  Sex: Female

DRUGS (1)
  1. ETOPOSIDE 50MG [Suspect]
     Active Substance: ETOPOSIDE
     Indication: BREAST CANCER FEMALE
     Route: 048
     Dates: start: 20190304

REACTIONS (1)
  - Death [None]

NARRATIVE: CASE EVENT DATE: 20190411
